FAERS Safety Report 14412458 (Version 1)
Quarter: 2018Q1

REPORT INFORMATION
  Report Type: Spontaneous
  Country: US (occurrence: US)
  Receive Date: 20180118
  Receipt Date: 20180118
  Transmission Date: 20180509
  Serious: Yes (Other)
  Sender: FDA-Public Use
  Company Number: None

PATIENT
  Age: 84 Year
  Sex: Female
  Weight: 63 kg

DRUGS (5)
  1. ACETAMINOPHEN-COD #3 [Suspect]
     Active Substance: ACETAMINOPHEN\CODEINE PHOSPHATE
     Indication: ARTHRITIS
     Dosage: ?          OTHER STRENGTH:TYLENOL 3;QUANTITY:180 TABLET(S);?TYLENOL 3?
     Route: 048
     Dates: start: 20180112, end: 20180116
  2. AMLOPDOPHINE [Concomitant]
  3. CENTRUM SILVER VITAMIN FOR WOMEN [Concomitant]
  4. GABAPENTIN. [Concomitant]
     Active Substance: GABAPENTIN
  5. FOSINOPRIL [Concomitant]
     Active Substance: FOSINOPRIL

REACTIONS (2)
  - Drug ineffective [None]
  - Product substitution issue [None]

NARRATIVE: CASE EVENT DATE: 20180112
